FAERS Safety Report 7474798-2 (Version None)
Quarter: 2011Q2

REPORT INFORMATION
  Report Type: 
  Country: None (occurrence: None)
  Receive Date: 20110512
  Receipt Date: 20110331
  Transmission Date: 20111010
  Serious: Yes (Other)
  Sender: FDA-Public Use
  Company Number: US-BAYER-201041723NA

PATIENT
  Sex: Female
  Weight: 91 kg

DRUGS (5)
  1. YAZ [Suspect]
     Indication: PRODUCT USED FOR UNKNOWN INDICATION
     Route: 048
  2. YASMIN [Suspect]
     Indication: PRODUCT USED FOR UNKNOWN INDICATION
     Dosage: UNK UNK, UNK
     Route: 048
     Dates: start: 20020501, end: 20090701
  3. DICYCLOMINE [Concomitant]
     Dosage: UNK
     Dates: start: 20080101
  4. DROSPIRENONE AND ETHINYL ESTRADIOL [Suspect]
     Dosage: UNK
     Dates: start: 20020501, end: 20090701
  5. CIPROFLOXACIN [Concomitant]
     Dosage: UNK
     Dates: start: 20080101

REACTIONS (1)
  - CHOLECYSTECTOMY [None]
